FAERS Safety Report 9393516 (Version 1)
Quarter: 2013Q3

REPORT INFORMATION
  Report Type: Report from Study
  Country: US (occurrence: US)
  Receive Date: 20130710
  Receipt Date: 20130710
  Transmission Date: 20140515
  Serious: Yes (Hospitalization)
  Sender: FDA-Public Use
  Company Number: US-BRISTOL-MYERS SQUIBB COMPANY-19068386

PATIENT
  Age: 47 Year
  Sex: Female
  Weight: 40 kg

DRUGS (2)
  1. IPILIMUMAB [Suspect]
     Indication: CERVIX CARCINOMA
     Dosage: LAST DOSE :20JUN2013
     Dates: start: 20130328
  2. CISPLATIN [Suspect]
     Indication: CERVIX CARCINOMA
     Dates: start: 20130328

REACTIONS (2)
  - Nausea [Recovered/Resolved]
  - Vomiting [Recovered/Resolved]
